FAERS Safety Report 23763231 (Version 1)
Quarter: 2024Q2

REPORT INFORMATION
  Report Type: Spontaneous
  Country: US (occurrence: None)
  Receive Date: 20240419
  Receipt Date: 20240419
  Transmission Date: 20240715
  Serious: Yes (Other)
  Sender: FDA-Public Use
  Company Number: None

PATIENT
  Age: 74 Year
  Sex: Female

DRUGS (1)
  1. TERIFLUNOMIDE [Suspect]
     Active Substance: TERIFLUNOMIDE
     Indication: Multiple sclerosis
     Dosage: FREQUENCY : DAILY;?

REACTIONS (8)
  - Oropharyngeal pain [None]
  - Erythema [None]
  - Malaise [None]
  - Dizziness [None]
  - Skin burning sensation [None]
  - Burning sensation [None]
  - Burning sensation [None]
  - Balance disorder [None]

NARRATIVE: CASE EVENT DATE: 20240412
